FAERS Safety Report 7919316-7 (Version None)
Quarter: 2011Q4

REPORT INFORMATION
  Report Type: 
  Country: None (occurrence: None)
  Receive Date: 20111115
  Receipt Date: 20111115
  Transmission Date: 20120403
  Serious: No
  Sender: FDA-Public Use
  Company Number: None

PATIENT
  Sex: Female

DRUGS (3)
  1. INCIVEK [Suspect]
  2. PEG-INTRON [Suspect]
     Dosage: 120 MCG/0.5ML PO
     Route: 048
  3. RIBAVIRIN [Suspect]

REACTIONS (2)
  - DIZZINESS POSTURAL [None]
  - DYSPNOEA [None]
